FAERS Safety Report 5610737-4 (Version None)
Quarter: 2008Q1

REPORT INFORMATION
  Report Type: 
  Country: None (occurrence: None)
  Receive Date: 20080201
  Receipt Date: 20080122
  Transmission Date: 20080703
  Serious: Yes (Death, Other)
  Sender: FDA-Public Use
  Company Number: AR-NOVOPROD-270153

PATIENT

DRUGS (2)
  1. NOVOSEVEN [Suspect]
     Indication: HAEMORRHAGE
     Dosage: 17.8 MG, UNK
     Route: 042
     Dates: start: 20071018
  2. NOVOSEVEN [Suspect]
     Dosage: 14.4 MG., UNK
     Route: 042
     Dates: start: 20071129

REACTIONS (2)
  - ABDOMINAL SEPSIS [None]
  - DISSEMINATED INTRAVASCULAR COAGULATION [None]
